FAERS Safety Report 7053169-7 (Version None)
Quarter: 2010Q4

REPORT INFORMATION
  Report Type: 
  Country: None (occurrence: None)
  Receive Date: 20101020
  Receipt Date: 20101008
  Transmission Date: 20110411
  Serious: Yes (Other)
  Sender: FDA-Public Use
  Company Number: FR-JNJFOC-20101003014

PATIENT

DRUGS (3)
  1. INFLIXIMAB, RECOMBINANT [Suspect]
     Indication: SARCOIDOSIS
     Dosage: AVERAGE INITIAL DOSE OF 3 TO 5 MG/KG AT WEEK 0, WEEK 2, WEEK 6 AND THEN EVERY SIX TO EIGHT WEEKS
     Route: 042
  2. CORTICOSTEROIDS [Concomitant]
  3. METHOTREXATE [Concomitant]

REACTIONS (1)
  - PNEUMOCYSTIS JIROVECI PNEUMONIA [None]
